FAERS Safety Report 9738434 (Version 1)
Quarter: 2013Q4

REPORT INFORMATION
  Report Type: Report from Study
  Country: CL (occurrence: CL)
  Receive Date: 20131208
  Receipt Date: 20131208
  Transmission Date: 20140711
  Serious: Yes (Disabling)
  Sender: FDA-Public Use
  Company Number: CL-ROCHE-1314298

PATIENT
  Age: 49 Year
  Sex: Female
  Weight: 89 kg

DRUGS (7)
  1. ACTEMRA [Suspect]
     Indication: RHEUMATOID ARTHRITIS
     Route: 042
     Dates: start: 20130823, end: 20131025
  2. PREDNISONE [Concomitant]
  3. LEFLUNOMIDE [Concomitant]
  4. CELECOXIB [Concomitant]
  5. TRAMADOL [Concomitant]
  6. HYDROXYCHLOROQUINE [Concomitant]
  7. LEVOTHYROXINE [Concomitant]

REACTIONS (6)
  - Pain in extremity [Recovering/Resolving]
  - Musculoskeletal stiffness [Recovering/Resolving]
  - Pain in extremity [Recovering/Resolving]
  - Musculoskeletal stiffness [Recovering/Resolving]
  - Musculoskeletal pain [Recovering/Resolving]
  - Musculoskeletal stiffness [Recovering/Resolving]
